FAERS Safety Report 10146783 (Version 1)
Quarter: 2014Q2

REPORT INFORMATION
  Report Type: Spontaneous
  Country: US (occurrence: None)
  Receive Date: 20140430
  Receipt Date: 20140430
  Transmission Date: 20141212
  Serious: Yes (Hospitalization)
  Sender: FDA-Public Use
  Company Number: None

PATIENT
  Age: 28 Year
  Sex: Female

DRUGS (13)
  1. PROPOFOL [Suspect]
     Indication: SEDATION
     Dosage: 80 MCG/KG/HR, CONTINUOUS, IV?
     Route: 042
     Dates: start: 20140213, end: 20140217
  2. ACETAMINOPHEN [Concomitant]
  3. AZITHROMYCIN [Concomitant]
  4. FENTANYL [Concomitant]
  5. FUROSEMIDE [Concomitant]
  6. HEPARIN [Concomitant]
  7. INSULIN REGULAR [Concomitant]
  8. LEVOFLOXACIN [Concomitant]
  9. VANCOMYCIN [Concomitant]
  10. RIFAMPIN [Concomitant]
  11. PVRIDOXINE [Concomitant]
  12. PIPERACILLIN/TAZOBACTAM [Concomitant]
  13. METRONIDAZOLE [Concomitant]

REACTIONS (3)
  - Blood triglycerides increased [None]
  - Pyrexia [None]
  - Lipase increased [None]
